FAERS Safety Report 6934612-8 (Version None)
Quarter: 2010Q3

REPORT INFORMATION
  Report Type: 
  Country: None (occurrence: None)
  Receive Date: 20100820
  Receipt Date: 20100811
  Transmission Date: 20110219
  Serious: Yes (Death)
  Sender: FDA-Public Use
  Company Number: KE-B.I. PHARMACEUTICALS,INC./RIDGEFIELD-2010-DE-04377GD

PATIENT

DRUGS (4)
  1. NEVIRAPINE [Suspect]
     Indication: HUMAN IMMUNODEFICIENCY VIRUS TRANSMISSION
     Dosage: 0.6 ML WITH APPROX. 2 MG/KG
     Route: 048
  2. NEVIRAPINE [Suspect]
     Indication: PROPHYLAXIS
     Route: 064
  3. ZIDOVUDINE [Suspect]
     Indication: DRUG EXPOSURE DURING PREGNANCY
     Route: 064
  4. LAMIVUDINE [Suspect]
     Indication: DRUG EXPOSURE DURING PREGNANCY
     Route: 064

REACTIONS (1)
  - DEHYDRATION [None]
